FAERS Safety Report 7442762-5 (Version None)
Quarter: 2011Q2

REPORT INFORMATION
  Report Type: 
  Country: None (occurrence: None)
  Receive Date: 20110419
  Receipt Date: 20110410
  Transmission Date: 20111010
  Serious: Yes (Other)
  Sender: FDA-Public Use
  Company Number: DKLU1069818

PATIENT
  Age: 21 Year
  Sex: Female

DRUGS (1)
  1. COSMEGEN [Suspect]
     Indication: PRODUCT USED FOR UNKNOWN INDICATION
     Dosage: 0.5 MG MILLIGRAM(S)

REACTIONS (1)
  - RENAL TUBULAR ACIDOSIS [None]
